FAERS Safety Report 9633791 (Version 1)
Quarter: 2013Q4

REPORT INFORMATION
  Report Type: Spontaneous
  Country: US (occurrence: US)
  Receive Date: 20131021
  Receipt Date: 20131021
  Transmission Date: 20140711
  Serious: No
  Sender: FDA-Public Use
  Company Number: US-009507513-1310USA008934

PATIENT
  Age: 42 Year
  Sex: Female

DRUGS (1)
  1. PROVENTIL [Suspect]
     Dosage: TWO PUFF EVERY 6 HOURS
     Route: 055
     Dates: start: 200903

REACTIONS (3)
  - Cough [Not Recovered/Not Resolved]
  - Drug dose omission [Unknown]
  - Product quality issue [Unknown]
